FAERS Safety Report 10243461 (Version 1)
Quarter: 2014Q2

REPORT INFORMATION
  Report Type: Spontaneous
  Country: US (occurrence: None)
  Receive Date: 20140616
  Receipt Date: 20140616
  Transmission Date: 20141212
  Serious: Yes (Other)
  Sender: FDA-Public Use
  Company Number: None

PATIENT
  Age: 46 Year
  Sex: Female
  Weight: 56.7 kg

DRUGS (1)
  1. SULFASALAZINE [Suspect]
     Indication: ANKYLOSING SPONDYLITIS
     Route: 048
     Dates: start: 20140401, end: 20140612

REACTIONS (7)
  - Depression [None]
  - Arthralgia [None]
  - Inflammation [None]
  - Malaise [None]
  - Influenza like illness [None]
  - Dizziness [None]
  - Balance disorder [None]
